FAERS Safety Report 4429221-9 (Version None)
Quarter: 2004Q3

REPORT INFORMATION
  Report Type: 
  Country: None (occurrence: None)
  Receive Date: 20040819
  Receipt Date: 20030903
  Transmission Date: 20050211
  Serious: Yes (Other)
  Sender: FDA-Public Use
  Company Number: FR-BRISTOL-MYERS SQUIBB COMPANY-12375069

PATIENT
  Age: 48 Year
  Sex: Male
  Weight: 85 kg

DRUGS (3)
  1. VIDEX EC [Suspect]
     Indication: HIV INFECTION
     Route: 048
     Dates: start: 20010710
  2. SUSTIVA [Suspect]
     Indication: HIV INFECTION
     Dates: start: 20010710
  3. EMTRIVA [Suspect]
     Indication: HIV INFECTION
     Dates: start: 20010710

REACTIONS (1)
  - HYPERTRIGLYCERIDAEMIA [None]
